FAERS Safety Report 4371966-3 (Version None)
Quarter: 2004Q2

REPORT INFORMATION
  Report Type: 
  Country: None (occurrence: None)
  Receive Date: 20040602
  Receipt Date: 20040602
  Transmission Date: 20050107
  Serious: Yes (Death)
  Sender: FDA-Public Use
  Company Number: None

PATIENT
  Age: 86 Year
  Sex: Male
  Weight: 80 kg

DRUGS (9)
  1. PANGLOBULIN 12% SOLUTION [Suspect]
     Indication: THROMBOCYTOPENIA
     Dosage: 84 G IV QD
     Route: 042
  2. ASPIRIN [Concomitant]
  3. CARVEDILOL [Concomitant]
  4. FOLIC ACID [Concomitant]
  5. FAMOTIDINE [Concomitant]
  6. ESCITALOPRAM [Concomitant]
  7. LASIX [Concomitant]
  8. LISINOPRIL [Concomitant]
  9. DOCUSATE [Concomitant]

REACTIONS (2)
  - MEDICATION ERROR [None]
  - RENAL FAILURE ACUTE [None]
